FAERS Safety Report 24806835 (Version 1)
Quarter: 2025Q1

REPORT INFORMATION
  Report Type: Spontaneous
  Country: US (occurrence: US)
  Receive Date: 20250104
  Receipt Date: 20250104
  Transmission Date: 20250409
  Serious: Yes (Death, Hospitalization, Other)
  Sender: AMGEN
  Company Number: US-AMGEN-USASP2024256606

PATIENT
  Age: 81 Year
  Sex: Male

DRUGS (5)
  1. PREDNISONE [Suspect]
     Active Substance: PREDNISONE
     Indication: Immune-mediated enterocolitis
     Route: 065
  2. INFLIXIMAB [Suspect]
     Active Substance: INFLIXIMAB
     Indication: Immune-mediated enterocolitis
     Route: 065
  3. INFLIXIMAB [Suspect]
     Active Substance: INFLIXIMAB
     Indication: Cytomegalovirus colitis
  4. NIVOLUMAB [Concomitant]
     Active Substance: NIVOLUMAB
     Indication: Metastatic malignant melanoma
     Route: 065
  5. RELATLIMAB [Concomitant]
     Active Substance: RELATLIMAB
     Indication: Metastatic malignant melanoma

REACTIONS (6)
  - Multiple organ dysfunction syndrome [Fatal]
  - Clostridium difficile colitis [Unknown]
  - Shock [Unknown]
  - Cytomegalovirus colitis [Unknown]
  - Pseudomembranous colitis [Unknown]
  - Off label use [Unknown]
